FAERS Safety Report 23606608 (Version 1)
Quarter: 2024Q1

REPORT INFORMATION
  Report Type: Spontaneous
  Country: SG (occurrence: SG)
  Receive Date: 20240307
  Receipt Date: 20240307
  Transmission Date: 20240410
  Serious: Yes (Hospitalization)
  Sender: FDA-Public Use
  Company Number: SG-SA-SAC20240304001199

PATIENT
  Age: 56 Year
  Sex: Male
  Weight: 81 kg

DRUGS (11)
  1. CLOPIDOGREL BISULFATE [Suspect]
     Active Substance: CLOPIDOGREL BISULFATE
     Indication: Dyslipidaemia
     Dosage: 75 MG, QD
     Route: 048
     Dates: start: 20240116, end: 20240116
  2. ASPIRIN [Suspect]
     Active Substance: ASPIRIN
     Indication: Dyslipidaemia
     Dosage: 100 MG, QD
     Route: 048
     Dates: start: 20240116, end: 20240116
  3. ATORVASTATIN [Suspect]
     Active Substance: ATORVASTATIN
     Indication: Dyslipidaemia
     Dosage: 40 MG, QD
     Route: 048
     Dates: start: 20240116, end: 20240116
  4. BISOPROLOL [Suspect]
     Active Substance: BISOPROLOL\BISOPROLOL FUMARATE
     Indication: Dyslipidaemia
     Dosage: 2.5 MG, QD
     Route: 048
     Dates: start: 20240116, end: 20240116
  5. EZETIMIBE [Suspect]
     Active Substance: EZETIMIBE
     Indication: Dyslipidaemia
     Dosage: 10 MG, QD
     Route: 048
     Dates: start: 20240116, end: 20240116
  6. FAMOTIDINE [Suspect]
     Active Substance: FAMOTIDINE
     Indication: Dyslipidaemia
     Dosage: 20 MG, QD
     Route: 048
     Dates: start: 20240116, end: 20240116
  7. CALIBERI [Concomitant]
     Dosage: 5 MG, QD
     Route: 048
     Dates: start: 20230703
  8. AD-CURE [Concomitant]
     Dosage: 2500 IU, QM
     Route: 048
     Dates: start: 20230703, end: 20231130
  9. EZETIMIBE [Concomitant]
     Active Substance: EZETIMIBE
     Dosage: 10 MG, QD
     Route: 048
     Dates: start: 20230703
  10. LIPITOR [Concomitant]
     Active Substance: ATORVASTATIN CALCIUM
     Dosage: 10 MG, QD
     Dates: start: 20110101, end: 20240114
  11. PROSTAKAN [SERENOA REPENS EXTRACT] [Concomitant]
     Dosage: UNK
     Route: 048
     Dates: start: 20230703

REACTIONS (3)
  - Rhinitis [Unknown]
  - Wheezing [Unknown]
  - Periorbital oedema [Unknown]

NARRATIVE: CASE EVENT DATE: 20240116
